FAERS Safety Report 25878132 (Version 2)
Quarter: 2025Q4

REPORT INFORMATION
  Report Type: Spontaneous
  Country: EU (occurrence: EU)
  Receive Date: 20251003
  Receipt Date: 20251013
  Transmission Date: 20260118
  Serious: Yes (Other)
  Sender: PFIZER
  Company Number: EU-PFIZER INC-PV202500117594

PATIENT
  Age: 56 Year
  Sex: Male

DRUGS (9)
  1. DOXORUBICIN HYDROCHLORIDE [Suspect]
     Active Substance: DOXORUBICIN HYDROCHLORIDE
     Indication: Primary effusion lymphoma
     Dosage: 6 CYCLES (FULL DOSE IN II AND III CYCLES, R-CHOP)
  2. EVEROLIMUS [Concomitant]
     Active Substance: EVEROLIMUS
     Indication: Immunosuppression
     Dosage: UNK
  3. CYCLOPHOSPHAMIDE [Concomitant]
     Active Substance: CYCLOPHOSPHAMIDE
     Indication: Primary effusion lymphoma
     Dosage: CVP
  4. CYCLOPHOSPHAMIDE [Concomitant]
     Active Substance: CYCLOPHOSPHAMIDE
     Dosage: 6 CYCLES (R-CHOP)
  5. PREDNISONE [Concomitant]
     Active Substance: PREDNISONE
     Indication: Primary effusion lymphoma
     Dosage: CVP
  6. PREDNISONE [Concomitant]
     Active Substance: PREDNISONE
     Dosage: 6 CYCLES (R-CHOP)
  7. RITUXIMAB [Concomitant]
     Active Substance: RITUXIMAB
     Indication: Primary effusion lymphoma
     Dosage: 6 CYCLES (R-CHOP)
  8. VINCRISTINE [Concomitant]
     Active Substance: VINCRISTINE
     Indication: Primary effusion lymphoma
     Dosage: CVP
  9. VINCRISTINE [Concomitant]
     Active Substance: VINCRISTINE
     Dosage: 6 CYCLES (R-CHOP)

REACTIONS (3)
  - Febrile neutropenia [Unknown]
  - Neurotoxicity [Unknown]
  - Jaundice [Unknown]
